FAERS Safety Report 6203715-8 (Version None)
Quarter: 2009Q2

REPORT INFORMATION
  Report Type: 
  Country: None (occurrence: None)
  Receive Date: 20090527
  Receipt Date: 20090520
  Transmission Date: 20091009
  Serious: Yes (Hospitalization)
  Sender: FDA-Public Use
  Company Number: US-ASTRAZENECA-2009UW13161

PATIENT
  Age: 29210 Day
  Sex: Female
  Weight: 59.6 kg

DRUGS (10)
  1. SEROQUEL [Suspect]
     Indication: DEMENTIA
     Route: 048
  2. SEROQUEL [Suspect]
     Indication: PSYCHOTIC DISORDER
     Route: 048
  3. SEROQUEL [Suspect]
     Dosage: 25 MG Q AM AND 75 MG HS
     Route: 048
     Dates: start: 20080728
  4. SEROQUEL [Suspect]
     Dosage: 25 MG Q AM AND 75 MG HS
     Route: 048
     Dates: start: 20080728
  5. SEROQUEL [Suspect]
     Dosage: 25 MG Q HS
     Route: 048
     Dates: start: 20081101, end: 20081130
  6. SEROQUEL [Suspect]
     Dosage: 25 MG Q HS
     Route: 048
     Dates: start: 20081101, end: 20081130
  7. TRAZODONE HCL [Concomitant]
  8. LOTENSIN [Concomitant]
  9. LANOXIN [Concomitant]
  10. COUMADIN [Concomitant]

REACTIONS (3)
  - DEHYDRATION [None]
  - INFECTION [None]
  - INTERNATIONAL NORMALISED RATIO INCREASED [None]
